FAERS Safety Report 8207051-X (Version None)
Quarter: 2012Q1

REPORT INFORMATION
  Report Type: 
  Country: None (occurrence: None)
  Receive Date: 20120314
  Receipt Date: 20120305
  Transmission Date: 20120608
  Serious: Yes (Other)
  Sender: FDA-Public Use
  Company Number: US-JNJFOC-20120200551

PATIENT
  Sex: Male
  Weight: 99.79 kg

DRUGS (2)
  1. CLOBEX [Concomitant]
     Route: 061
     Dates: start: 20120113, end: 20120202
  2. STELARA [Suspect]
     Indication: PSORIASIS
     Dosage: APPROXIMATE TOTAL NUMBER OF INJECTIONS RECEIVED WAS 5
     Route: 058
     Dates: start: 20110209, end: 20111102

REACTIONS (1)
  - LATENT TUBERCULOSIS [None]
